FAERS Safety Report 5045969-X (Version None)
Quarter: 2006Q3

REPORT INFORMATION
  Report Type: 
  Country: None (occurrence: None)
  Receive Date: 20060710
  Receipt Date: 20060628
  Transmission Date: 20061208
  Serious: Yes (Hospitalization)
  Sender: FDA-Public Use
  Company Number: FR-BRISTOL-MYERS SQUIBB COMPANY-13429154

PATIENT
  Age: 76 Year
  Sex: Female

DRUGS (10)
  1. LOPRIL TABS [Suspect]
     Route: 048
  2. ALDALIX [Suspect]
     Dates: end: 20060601
  3. DIGOXIN [Suspect]
     Dosage: DAILY DOSE: 0.20 MG ^1/4^ PER DAY
     Dates: start: 20060607, end: 20060601
  4. LESCOL [Concomitant]
  5. LERCAN [Concomitant]
  6. AVLOCARDYL [Concomitant]
  7. SINTROM [Concomitant]
  8. ASPEGIC 1000 [Concomitant]
  9. NOVOMIX [Concomitant]
  10. VOLTAREN [Concomitant]
     Indication: BACK PAIN
     Dates: start: 20060603

REACTIONS (4)
  - BRADYCARDIA [None]
  - HYPERKALAEMIA [None]
  - RENAL FAILURE ACUTE [None]
  - VISUAL ACUITY REDUCED [None]
